FAERS Safety Report 24122638 (Version 1)
Quarter: 2024Q3

REPORT INFORMATION
  Report Type: Spontaneous
  Country: US (occurrence: US)
  Receive Date: 20240723
  Receipt Date: 20240723
  Transmission Date: 20241017
  Serious: Yes (Other)
  Sender: Unknown Manufacturer
  Company Number: US-KOANAAP-SML-US-2024-00734

PATIENT
  Age: 63 Year
  Sex: Male

DRUGS (2)
  1. PEMETREXED [Suspect]
     Active Substance: PEMETREXED
     Indication: Rhabdoid tumour
  2. CISPLATIN [Suspect]
     Active Substance: CISPLATIN
     Indication: Rhabdoid tumour

REACTIONS (4)
  - Drug ineffective [Unknown]
  - Dyspnoea [Unknown]
  - Hypoxia [Unknown]
  - Disease progression [Unknown]
